FAERS Safety Report 19944968 (Version 2)
Quarter: 2021Q4

REPORT INFORMATION
  Report Type: Spontaneous
  Country: US (occurrence: US)
  Receive Date: 20211012
  Receipt Date: 20211015
  Transmission Date: 20220303
  Serious: Yes (Death)
  Sender: FDA-Public Use
  Company Number: US-PFIZER INC-2020087295

PATIENT
  Age: 63 Year
  Sex: Male

DRUGS (3)
  1. INSPRA [Suspect]
     Active Substance: EPLERENONE
     Dosage: 50 MG, DAILY (2 TAB PO Q DAY)
     Route: 048
  2. INSPRA [Suspect]
     Active Substance: EPLERENONE
     Dosage: 25 MG, 2X/DAY (TAKE 1 TABLET BY MOUTH TWICE A DAY)
     Route: 048
  3. INSPRA [Suspect]
     Active Substance: EPLERENONE
     Dosage: 25 MG (QUANTITY FOR 90 DAYS: #180)

REACTIONS (3)
  - Death [Fatal]
  - Off label use [Unknown]
  - Product use issue [Unknown]
